FAERS Safety Report 4743319-7 (Version None)
Quarter: 2005Q3

REPORT INFORMATION
  Report Type: 
  Country: None (occurrence: None)
  Receive Date: 20050811
  Receipt Date: 20050804
  Transmission Date: 20060218
  Serious: Yes (Other)
  Sender: FDA-Public Use
  Company Number: US-2005-006137

PATIENT
  Sex: Female

DRUGS (1)
  1. YASMIN [Suspect]
     Dosage: 1 TAB (S), 1X/DAY, ORAL
     Route: 048
     Dates: start: 20030101

REACTIONS (14)
  - ANXIETY [None]
  - ARTHRALGIA [None]
  - BREAST MASS [None]
  - DEPRESSION [None]
  - EYE DISORDER [None]
  - FATIGUE [None]
  - GASTROOESOPHAGEAL REFLUX DISEASE [None]
  - HUNGER [None]
  - MIGRAINE [None]
  - MOOD SWINGS [None]
  - PANIC ATTACK [None]
  - PARANOIA [None]
  - VAGINAL DISCHARGE [None]
  - WEIGHT INCREASED [None]
